FAERS Safety Report 20132764 (Version 1)
Quarter: 2021Q4

REPORT INFORMATION
  Report Type: Spontaneous
  Country: US (occurrence: US)
  Receive Date: 20211130
  Receipt Date: 20211130
  Transmission Date: 20220303
  Serious: Yes (Other)
  Sender: FDA-Public Use
  Company Number: US-SUN PHARMACEUTICAL INDUSTRIES LTD-2021R1-319212

PATIENT
  Age: 52 Year
  Sex: Female

DRUGS (2)
  1. PREDNISONE [Suspect]
     Active Substance: PREDNISONE
     Indication: Product used for unknown indication
     Dosage: UNK
     Route: 048
  2. NATALIZUMAB [Suspect]
     Active Substance: NATALIZUMAB
     Indication: Multiple sclerosis
     Dosage: UNK
     Route: 065

REACTIONS (4)
  - Blood bilirubin increased [Unknown]
  - Liver function test abnormal [Unknown]
  - Drug-induced liver injury [Unknown]
  - Hepatotoxicity [Unknown]
